FAERS Safety Report 11350479 (Version 1)
Quarter: 2015Q3

REPORT INFORMATION
  Report Type: Spontaneous
  Country: US (occurrence: None)
  Receive Date: 20150805
  Receipt Date: 20150805
  Transmission Date: 20151125
  Serious: No
  Sender: FDA-Public Use
  Company Number: None

PATIENT
  Age: 73 Year
  Sex: Male

DRUGS (13)
  1. MIRTAZAPINE. [Concomitant]
     Active Substance: MIRTAZAPINE
  2. ONDANSETRON [Concomitant]
     Active Substance: ONDANSETRON
  3. SOTALOL. [Concomitant]
     Active Substance: SOTALOL
  4. GABAPENTIN. [Concomitant]
     Active Substance: GABAPENTIN
  5. HYDROCHLOROTHIAZIDE. [Concomitant]
     Active Substance: HYDROCHLOROTHIAZIDE
  6. INSULIN ASPART [Concomitant]
     Active Substance: INSULIN ASPART
  7. KETOCONAZOLE. [Concomitant]
     Active Substance: KETOCONAZOLE
  8. LORAZAPAM [Concomitant]
     Active Substance: LORAZEPAM
  9. SIMETHICONE (DIMETHICONE) [Concomitant]
     Active Substance: DIMETHICONE
  10. INSULIN REG/NPH 70/30 [Concomitant]
  11. OXYCODONE [Concomitant]
     Active Substance: OXYCODONE
  12. INSULIN GLARGINE [Suspect]
     Active Substance: INSULIN GLARGINE
     Indication: HYPERGLYCAEMIA
     Dosage: 60 UNITS
     Route: 058
     Dates: start: 20141130, end: 20141201
  13. SENNA [Concomitant]
     Active Substance: SENNA LEAF\SENNOSIDES\SENNOSIDES A AND B

REACTIONS (1)
  - Blood glucose decreased [None]

NARRATIVE: CASE EVENT DATE: 20141201
